FAERS Safety Report 4618386-1 (Version None)
Quarter: 2005Q1

REPORT INFORMATION
  Report Type: 
  Country: None (occurrence: None)
  Receive Date: 20050324
  Receipt Date: 20041123
  Transmission Date: 20050727
  Serious: Yes (Disabling, Other)
  Sender: FDA-Public Use
  Company Number: US-MERCK-0411USA03743

PATIENT
  Age: 73 Year
  Sex: Female
  Weight: 70 kg

DRUGS (5)
  1. VIOXX [Suspect]
     Indication: ARTHRITIS
     Route: 048
     Dates: start: 20000101, end: 20040101
  2. VIOXX [Suspect]
     Indication: OSTEOARTHRITIS
     Route: 048
     Dates: start: 20000101, end: 20040101
  3. FOSAMAX [Concomitant]
     Indication: OSTEOPENIA
     Route: 048
     Dates: start: 20020101
  4. CHONDROITIN SULFATE SODIUM AND GLUCOSAMINE HYDROCHLORIDE [Concomitant]
     Indication: OSTEOPENIA
     Route: 048
     Dates: start: 20000101
  5. CALCIUM (UNSPECIFIED) AND VITAMIN D (UNSPECIFIED) [Concomitant]
     Indication: OSTEOPENIA
     Route: 065
     Dates: start: 20020101

REACTIONS (3)
  - CEREBROVASCULAR ACCIDENT [None]
  - MEDICATION ERROR [None]
  - TRANSIENT ISCHAEMIC ATTACK [None]
